FAERS Safety Report 17505043 (Version 1)
Quarter: 2020Q1

REPORT INFORMATION
  Report Type: Report from Study
  Country: US (occurrence: US)
  Receive Date: 20200305
  Receipt Date: 20200305
  Transmission Date: 20200409
  Serious: Yes (Hospitalization)
  Sender: FDA-Public Use
  Company Number: GXBR2014US002634

PATIENT
  Age: 16 Year
  Sex: Male
  Weight: 58.9 kg

DRUGS (1)
  1. SOMATROPIN (RHGH) LYOPHILIZED POWDER [Suspect]
     Active Substance: SOMATROPIN
     Indication: GROWTH HORMONE DEFICIENCY
     Dosage: 4.0 MG, QD
     Route: 065
     Dates: start: 20130211

REACTIONS (3)
  - Abdominal pain lower [Recovered/Resolved]
  - Appendicitis [Recovered/Resolved]
  - Nausea [Recovered/Resolved]

NARRATIVE: CASE EVENT DATE: 20140118
